FAERS Safety Report 6268697-1 (Version None)
Quarter: 2009Q3

REPORT INFORMATION
  Report Type: 
  Country: None (occurrence: None)
  Receive Date: 20090714
  Receipt Date: 20090714
  Transmission Date: 20100115
  Serious: Yes (Hospitalization)
  Sender: FDA-Public Use
  Company Number: None

PATIENT
  Sex: Male
  Weight: 50.71 kg

DRUGS (2)
  1. SIMVASTATIN [Suspect]
     Indication: CORONARY ARTERY DISEASE
     Dosage: 2 TABLETS -80 MG- ONCE PO
     Route: 048
  2. KALETRA [Suspect]
     Indication: HIV INFECTION
     Dosage: 2 TABLETS -400MG/ 100 MG- 3 TIMES DAILY PO
     Route: 048

REACTIONS (2)
  - POTENTIATING DRUG INTERACTION [None]
  - RHABDOMYOLYSIS [None]
